FAERS Safety Report 13652003 (Version 1)
Quarter: 2017Q2

REPORT INFORMATION
  Report Type: Spontaneous
  Country: US (occurrence: US)
  Receive Date: 20170614
  Receipt Date: 20170614
  Transmission Date: 20170830
  Serious: Yes (Hospitalization)
  Sender: FDA-Public Use
  Company Number: None

PATIENT
  Age: 74 Year
  Weight: 83.25 kg

DRUGS (12)
  1. DAILY VITAMIN [Concomitant]
     Active Substance: VITAMINS
  2. OXYCODONE-ACETAMINOPHEN FOR PERC [Suspect]
     Active Substance: ACETAMINOPHEN\OXYCODONE HYDROCHLORIDE
     Indication: PAIN
     Dosage: ?          QUANTITY:1 TABLET(S);?
     Route: 048
     Dates: start: 20170518, end: 20170602
  3. CALF COMPRESSION DEVICES [Concomitant]
  4. TRAMADOL HCL FOR ULTRAM [Suspect]
     Active Substance: TRAMADOL HYDROCHLORIDE
     Indication: KNEE ARTHROPLASTY
     Dosage: ?          QUANTITY:1 TABLET(S);?
     Route: 048
     Dates: start: 20170523, end: 20170602
  5. OXYCODONE-ACETAMINOPHEN FOR PERC [Suspect]
     Active Substance: ACETAMINOPHEN\OXYCODONE HYDROCHLORIDE
     Indication: KNEE ARTHROPLASTY
     Dosage: ?          QUANTITY:1 TABLET(S);?
     Route: 048
     Dates: start: 20170518, end: 20170602
  6. ASPIRIN. [Concomitant]
     Active Substance: ASPIRIN
  7. ATENOLOL. [Concomitant]
     Active Substance: ATENOLOL
  8. TRAMADOL HCL FOR ULTRAM [Suspect]
     Active Substance: TRAMADOL HYDROCHLORIDE
     Indication: PAIN
     Dosage: ?          QUANTITY:1 TABLET(S);?
     Route: 048
     Dates: start: 20170523, end: 20170602
  9. ICE MACHINE [Concomitant]
  10. CANE STOOL SOFTENER [Concomitant]
  11. SIMVASTATIN. [Concomitant]
     Active Substance: SIMVASTATIN
  12. WELCHOL [Concomitant]
     Active Substance: COLESEVELAM HYDROCHLORIDE

REACTIONS (4)
  - Speech disorder [None]
  - Pharyngeal oedema [None]
  - Pruritus generalised [None]
  - Swollen tongue [None]

NARRATIVE: CASE EVENT DATE: 20170602
